FAERS Safety Report 19570968 (Version 1)
Quarter: 2021Q3

REPORT INFORMATION
  Report Type: Spontaneous
  Country: US (occurrence: US)
  Receive Date: 20210716
  Receipt Date: 20210716
  Transmission Date: 20211014
  Serious: Yes (Hospitalization, Other)
  Sender: FDA-Public Use
  Company Number: US-JNJFOC-20210716714

PATIENT
  Age: 67 Year
  Sex: Male

DRUGS (2)
  1. MOTRIN [Suspect]
     Active Substance: IBUPROFEN
     Indication: ARTHRALGIA
     Dosage: 600?800 MG EVERY 8 HOURS X 3 YEARS
     Route: 048
  2. MOTRIN [Suspect]
     Active Substance: IBUPROFEN
     Indication: BACK PAIN

REACTIONS (3)
  - Tubulointerstitial nephritis [Recovering/Resolving]
  - Glomerulonephropathy [Recovering/Resolving]
  - Glomerulonephritis minimal lesion [Recovering/Resolving]
